FAERS Safety Report 15374416 (Version 1)
Quarter: 2018Q3

REPORT INFORMATION
  Report Type: Spontaneous
  Country: US (occurrence: US)
  Receive Date: 20180905
  Receipt Date: 20180905
  Transmission Date: 20181010
  Serious: Yes (Hospitalization)
  Sender: FDA-Public Use
  Company Number: None

PATIENT
  Age: 53 Year
  Sex: Female

DRUGS (7)
  1. DOXORUBICIN LIPO 2MG/ML [Suspect]
     Active Substance: DOXORUBICIN HYDROCHLORIDE
     Indication: OVARIAN CANCER
     Dosage: OTHER FREQUENCY:Q 28 DAYS;OTHER ROUTE:INFUSE IV PIGGYBACK?
     Dates: start: 201705
  2. GEMCITABINE [Suspect]
     Active Substance: GEMCITABINE\GEMCITABINE HYDROCHLORIDE
     Indication: OVARIAN CANCER
     Route: 042
     Dates: start: 201808
  3. DEXAMETH PHOS 10MG VIAL [Suspect]
     Active Substance: DEXAMETHASONE SODIUM PHOSPHATE
     Indication: OVARIAN CANCER
     Dosage: OTHER FREQUENCY:Q 28 DAYS;OTHER ROUTE:INFUSE IV PIGGYBACK?
     Route: 042
     Dates: start: 201705
  4. DIPHENHYDRAMINE 50MG SDV [Suspect]
     Active Substance: DIPHENHYDRAMINE HYDROCHLORIDE
     Indication: OVARIAN CANCER
     Dosage: OTHER FREQUENCY:Q 28 DAYS;OTHER ROUTE:INFUSE IV PIGGYBACK?
     Route: 042
     Dates: start: 201705
  5. GEMCITABINE 200MG SDV [Suspect]
     Active Substance: GEMCITABINE HYDROCHLORIDE
     Indication: OVARIAN CANCER
     Route: 042
     Dates: start: 201808
  6. GRANISETRON 1. G/ML SDV [Suspect]
     Active Substance: GRANISETRON HYDROCHLORIDE
     Indication: OVARIAN CANCER
     Dosage: ?          OTHER STRENGTH:1 G/ML;?
     Route: 042
     Dates: start: 201808
  7. ODANSETRON 4MG/2ML SDV [Suspect]
     Active Substance: ONDANSETRON HYDROCHLORIDE
     Indication: OVARIAN CANCER
     Dosage: OTHER FREQUENCY:Q 28 DAYS;OTHER ROUTE:INFUSE IV PIGGYBACK?
     Dates: start: 201705

REACTIONS (1)
  - Abdominal pain [None]
